FAERS Safety Report 6267345-4 (Version None)
Quarter: 2009Q3

REPORT INFORMATION
  Report Type: 
  Country: None (occurrence: None)
  Receive Date: 20090714
  Receipt Date: 20090707
  Transmission Date: 20100115
  Serious: Yes (Hospitalization)
  Sender: FDA-Public Use
  Company Number: A0795759A

PATIENT
  Age: 58 Year
  Sex: Female

DRUGS (10)
  1. ADVAIR HFA [Suspect]
     Indication: CHRONIC OBSTRUCTIVE PULMONARY DISEASE
     Route: 055
     Dates: start: 20020101
  2. OXYGEN [Concomitant]
  3. RITALIN [Concomitant]
  4. SPIRIVA [Concomitant]
  5. THEOPHYLLINE [Concomitant]
  6. LISINOPRIL [Concomitant]
  7. VERAPAMIL [Concomitant]
  8. CYMBALTA [Concomitant]
  9. ALPRAZOLAM [Concomitant]
  10. RITALIN [Concomitant]

REACTIONS (2)
  - CARDIAC ARREST [None]
  - PNEUMONIA [None]
